FAERS Safety Report 10934760 (Version 2)
Quarter: 2015Q2

REPORT INFORMATION
  Report Type: Spontaneous
  Country: US (occurrence: US)
  Receive Date: 20150320
  Receipt Date: 20150617
  Transmission Date: 20150821
  Serious: No
  Sender: FDA-Public Use
  Company Number: US-GALDERMA-US15000028

PATIENT
  Age: 31 Year
  Sex: Male

DRUGS (2)
  1. MIRVASO [Suspect]
     Active Substance: BRIMONIDINE TARTRATE
     Indication: ROSACEA
     Dosage: 0.33%
     Route: 061
     Dates: start: 20150101, end: 20150102
  2. EUCERIN REDNESS RELIEF CLEANSER [Concomitant]
     Indication: THERAPEUTIC SKIN CARE TOPICAL
     Route: 061
     Dates: start: 2010

REACTIONS (8)
  - Skin burning sensation [Recovered/Resolved]
  - Flushing [Recovered/Resolved]
  - Pain of skin [Recovered/Resolved]
  - Feeling hot [Recovered/Resolved]
  - Erythema [Recovered/Resolved]
  - Rebound effect [Recovered/Resolved]
  - Pallor [Recovered/Resolved]
  - Condition aggravated [Recovered/Resolved]

NARRATIVE: CASE EVENT DATE: 20150101
